FAERS Safety Report 5747240-7 (Version None)
Quarter: 2008Q2

REPORT INFORMATION
  Report Type: 
  Country: None (occurrence: None)
  Receive Date: 20080520
  Receipt Date: 20080505
  Transmission Date: 20081010
  Serious: Yes (Hospitalization)
  Sender: FDA-Public Use
  Company Number: TPA2008A00498

PATIENT
  Age: 69 Year
  Sex: Female
  Weight: 62.3696 kg

DRUGS (8)
  1. PIOGLITAZONE HCL [Suspect]
     Indication: CEREBROVASCULAR ACCIDENT PROPHYLAXIS
     Dosage: 45 MG, 1 IN 1 D, PER ORAL; 45 MG, 1 IN 1 D, PER ORAL; 45 MG, PER ORAL
     Route: 048
     Dates: start: 20070312, end: 20070729
  2. PIOGLITAZONE HCL [Suspect]
     Indication: CEREBROVASCULAR ACCIDENT PROPHYLAXIS
     Dosage: 45 MG, 1 IN 1 D, PER ORAL; 45 MG, 1 IN 1 D, PER ORAL; 45 MG, PER ORAL
     Route: 048
     Dates: start: 20070730, end: 20071024
  3. PIOGLITAZONE HCL [Suspect]
     Indication: CEREBROVASCULAR ACCIDENT PROPHYLAXIS
     Dosage: 45 MG, 1 IN 1 D, PER ORAL; 45 MG, 1 IN 1 D, PER ORAL; 45 MG, PER ORAL
     Route: 048
     Dates: start: 20071025
  4. LIPITOR [Concomitant]
  5. PLAVIX [Concomitant]
  6. CARBOCAL (COLECALCIFEROL, CALCIUM CARBONATE) [Concomitant]
  7. VITALUX (ASCORBIC ACID, RIBOFLAVIN, BETACAROTENE, COPPER, ZINC, SELINI [Concomitant]
  8. ACTONEL [Concomitant]

REACTIONS (4)
  - ANKLE FRACTURE [None]
  - ARTHRALGIA [None]
  - FALL [None]
  - JOINT SPRAIN [None]
